FAERS Safety Report 5176726-1 (Version None)
Quarter: 2006Q4

REPORT INFORMATION
  Report Type: 
  Country: None (occurrence: None)
  Receive Date: 20061218
  Receipt Date: 20060912
  Transmission Date: 20070319
  Serious: Yes (Hospitalization)
  Sender: FDA-Public Use
  Company Number: US-BAYER-200613888BCC

PATIENT
  Age: 75 Year
  Sex: Male
  Weight: 84 kg

DRUGS (3)
  1. ALEVE [Suspect]
     Indication: MYALGIA
     Dosage: TOTAL DAILY DOSE: 880 MG  UNIT DOSE: 220 MG
     Route: 048
     Dates: start: 19950101, end: 20050101
  2. ALEVE [Suspect]
     Dosage: TOTAL DAILY DOSE: 220 MG  UNIT DOSE: 220 MG
     Route: 048
  3. LIPITOR [Concomitant]

REACTIONS (3)
  - CORONARY ARTERY BYPASS [None]
  - GINGIVAL BLEEDING [None]
  - TONGUE DISCOLOURATION [None]
